FAERS Safety Report 24585799 (Version 1)
Quarter: 2024Q4

REPORT INFORMATION
  Report Type: Spontaneous
  Country: BR (occurrence: BR)
  Receive Date: 20241106
  Receipt Date: 20241106
  Transmission Date: 20250115
  Serious: Yes (Other)
  Sender: BAYER HEALTHCARE PHARMACEUTICALS INC.
  Company Number: BR-BAYER-2024A154913

PATIENT
  Age: 27 Year
  Sex: Female

DRUGS (3)
  1. KYLEENA [Suspect]
     Active Substance: LEVONORGESTREL
     Indication: Contraception
     Dosage: 17.5?G/DAY
     Route: 015
     Dates: start: 20231111
  2. IRONFER [Concomitant]
     Indication: Multiple fractures
     Dosage: UNK
     Route: 042
     Dates: start: 20240601
  3. Collagen turmeric complex [Concomitant]
     Indication: Multiple fractures
     Dosage: UNK
     Dates: start: 20240601

REACTIONS (4)
  - Dengue haemorrhagic fever [Not Recovered/Not Resolved]
  - Weight increased [Recovering/Resolving]
  - Coital bleeding [Recovering/Resolving]
  - Anaemia [Not Recovered/Not Resolved]

NARRATIVE: CASE EVENT DATE: 20240601
